FAERS Safety Report 6934747-X (Version None)
Quarter: 2010Q3

REPORT INFORMATION
  Report Type: 
  Country: None (occurrence: None)
  Receive Date: 20100820
  Receipt Date: 20100810
  Transmission Date: 20110219
  Serious: Yes (Other)
  Sender: FDA-Public Use
  Company Number: US-ALLERGAN-1010400US

PATIENT
  Age: 77 Year
  Sex: Female

DRUGS (3)
  1. RESTASIS [Suspect]
     Indication: DRY EYE
     Dosage: 1 GTT, BID
     Route: 047
     Dates: start: 20100101
  2. RESTASIS [Suspect]
     Dosage: 1 GTT, BID
     Route: 047
     Dates: start: 20100101
  3. REFRESH OPTIVE [Concomitant]
     Indication: DRY EYE

REACTIONS (1)
  - CONJUNCTIVITIS BACTERIAL [None]
